FAERS Safety Report 20001340 (Version 1)
Quarter: 2021Q4

REPORT INFORMATION
  Report Type: Spontaneous
  Country: US (occurrence: US)
  Receive Date: 20211027
  Receipt Date: 20211027
  Transmission Date: 20220303
  Serious: No
  Sender: FDA-Public Use
  Company Number: None

PATIENT
  Age: 43 Year
  Sex: Female
  Weight: 101.25 kg

DRUGS (6)
  1. TRINTELLIX [Suspect]
     Active Substance: VORTIOXETINE HYDROBROMIDE
     Indication: Depression
     Dosage: ?          QUANTITY:1 TABLET(S);
     Route: 048
     Dates: start: 20211022
  2. DEXILANT [Concomitant]
     Active Substance: DEXLANSOPRAZOLE
  3. PHENTERMINE [Concomitant]
     Active Substance: PHENTERMINE
  4. LIOTHYRONINE [Concomitant]
     Active Substance: LIOTHYRONINE
  5. VITAMIND D [Concomitant]
  6. HERBALS\TURMERIC [Concomitant]
     Active Substance: HERBALS\TURMERIC

REACTIONS (4)
  - Chest discomfort [None]
  - Abdominal pain [None]
  - Diarrhoea [None]
  - Dizziness [None]
